FAERS Safety Report 13317696 (Version 1)
Quarter: 2017Q1

REPORT INFORMATION
  Report Type: Spontaneous
  Country: US (occurrence: US)
  Receive Date: 20170309
  Receipt Date: 20170309
  Transmission Date: 20170428
  Serious: Yes (Hospitalization)
  Sender: FDA-Public Use
  Company Number: None

PATIENT
  Age: 76 Year
  Sex: Female
  Weight: 69.6 kg

DRUGS (10)
  1. NEBIVOLOL. [Concomitant]
     Active Substance: NEBIVOLOL
  2. RECLAST [Suspect]
     Active Substance: ZOLEDRONIC ACID
     Indication: OSTEOPOROSIS PROPHYLAXIS
     Dosage: ?          OTHER FREQUENCY:YEARLY;?
     Route: 041
     Dates: start: 20170308, end: 20170308
  3. VITAMIN D [Concomitant]
     Active Substance: CHOLECALCIFEROL
  4. FISH OIL [Concomitant]
     Active Substance: FISH OIL
  5. HYDROCHLOROTHIAZIDE. [Concomitant]
     Active Substance: HYDROCHLOROTHIAZIDE
  6. ASPIRIN. [Concomitant]
     Active Substance: ASPIRIN
  7. BIOTIN [Concomitant]
     Active Substance: BIOTIN
  8. CALCIUM CARBONATE W/ VITAMIN D [Concomitant]
  9. FLAXSEED [Concomitant]
     Active Substance: FLAX SEED
  10. GLUCOSAMINE + CHONDROITIN [Concomitant]
     Active Substance: CHONDROITIN SULFATE (BOVINE)\GLUCOSAMINE HYDROCHLORIDE

REACTIONS (9)
  - Hypertension [None]
  - Blood lactic acid increased [None]
  - Pyrexia [None]
  - Pain [None]
  - Sepsis [None]
  - Back pain [None]
  - Chest pain [None]
  - Chills [None]
  - Calcium ionised decreased [None]

NARRATIVE: CASE EVENT DATE: 20170308
